FAERS Safety Report 12109586 (Version 1)
Quarter: 2016Q1

REPORT INFORMATION
  Report Type: Spontaneous
  Country: US (occurrence: None)
  Receive Date: 20160223
  Receipt Date: 20160223
  Transmission Date: 20160526
  Serious: Yes (Disabling)
  Sender: FDA-Public Use
  Company Number: None

PATIENT
  Age: 31 Year
  Sex: Male
  Weight: 88.45 kg

DRUGS (7)
  1. LOSARTAN. [Concomitant]
     Active Substance: LOSARTAN
  2. PRILOSEC [Concomitant]
     Active Substance: OMEPRAZOLE MAGNESIUM
  3. DUTASTERIDE .5 MG / DAY GENOLOSS / GENPHARMA [Suspect]
     Active Substance: DUTASTERIDE
     Indication: ALOPECIA
     Route: 048
  4. HCTZ [Concomitant]
     Active Substance: HYDROCHLOROTHIAZIDE
  5. RESTASIS [Concomitant]
     Active Substance: CYCLOSPORINE
  6. SALMON OIL [Concomitant]
     Active Substance: FISH OIL
  7. LEVOTHYROXIN [Concomitant]
     Active Substance: LEVOTHYROXINE

REACTIONS (3)
  - Hypothyroidism [None]
  - Hypertension [None]
  - Product substitution issue [None]
